FAERS Safety Report 24037189 (Version 2)
Quarter: 2024Q4

REPORT INFORMATION
  Report Type: Report from Study
  Country: CA (occurrence: CA)
  Receive Date: 20240701
  Receipt Date: 20241106
  Transmission Date: 20250115
  Serious: Yes (Other)
  Sender: Alvotech
  Company Number: CA-JAMP PHARMA CORPORATION-2024-JAM-CA-01260

PATIENT
  Age: 26 Year
  Sex: Female

DRUGS (3)
  1. SIMLANDI [Suspect]
     Active Substance: ADALIMUMAB-RYVK
     Indication: Crohn^s disease
     Dosage: 80 MG, LOADING DOSE
     Route: 065
     Dates: start: 20240618, end: 20240618
  2. SIMLANDI [Suspect]
     Active Substance: ADALIMUMAB-RYVK
     Indication: Crohn^s disease
     Dosage: 40 MG EVERY 2 WEEKS
     Route: 065
  3. SIMLANDI [Suspect]
     Active Substance: ADALIMUMAB-RYVK
     Indication: Crohn^s disease
     Dosage: 4 INJECTIONS OF 40 MG, FIRST DOSE
     Route: 065

REACTIONS (11)
  - Loss of consciousness [Unknown]
  - Arrhythmia [Unknown]
  - Presyncope [Unknown]
  - Feeling jittery [Unknown]
  - Stress [Unknown]
  - Dizziness [Unknown]
  - Vision blurred [Unknown]
  - Palpitations [Unknown]
  - Frequent bowel movements [Unknown]
  - Pain in extremity [Recovered/Resolved]
  - Asthenia [Recovered/Resolved]
